FAERS Safety Report 16686318 (Version 9)
Quarter: 2021Q1

REPORT INFORMATION
  Report Type: Other
  Country: JP (occurrence: JP)
  Receive Date: 20190809
  Receipt Date: 20210113
  Transmission Date: 20210419
  Serious: Yes (Death, Hospitalization, Other)
  Sender: FDA-Public Use
  Company Number: JP-ROCHE-2371110

PATIENT
  Age: 75 Year
  Sex: Male
  Weight: 65 kg

DRUGS (14)
  1. TREAKISYM [Suspect]
     Active Substance: BENDAMUSTINE HYDROCHLORIDE
     Indication: B-CELL LYMPHOMA
     Dosage: DOSAGE IS UNCERTAIN.
     Route: 041
     Dates: start: 20190515, end: 20190516
  2. OBINUTUZUMAB. [Suspect]
     Active Substance: OBINUTUZUMAB
     Route: 041
     Dates: start: 20190527, end: 20190527
  3. OBINUTUZUMAB. [Suspect]
     Active Substance: OBINUTUZUMAB
     Route: 041
     Dates: start: 20191008, end: 20191008
  4. OBINUTUZUMAB. [Suspect]
     Active Substance: OBINUTUZUMAB
     Route: 041
     Dates: start: 20191217, end: 20191217
  5. VALIXA [Suspect]
     Active Substance: VALGANCICLOVIR
     Indication: CYTOMEGALOVIRUS VIRAEMIA
     Dosage: DOSAGE IS UNCERTAIN.
     Route: 048
     Dates: start: 20190731, end: 20190827
  6. VALIXA [Suspect]
     Active Substance: VALGANCICLOVIR
     Dosage: DOSAGE IS UNCERTAIN.
     Route: 048
     Dates: start: 20190913, end: 20190930
  7. OBINUTUZUMAB. [Suspect]
     Active Substance: OBINUTUZUMAB
     Indication: B-CELL LYMPHOMA
     Route: 041
     Dates: start: 20190520, end: 20190520
  8. OBINUTUZUMAB. [Suspect]
     Active Substance: OBINUTUZUMAB
     Route: 041
     Dates: start: 20190912, end: 20190912
  9. VALIXA [Suspect]
     Active Substance: VALGANCICLOVIR
     Dosage: DOSAGE IS UNCERTAIN.
     Route: 048
     Dates: start: 20191031
  10. OBINUTUZUMAB. [Suspect]
     Active Substance: OBINUTUZUMAB
     Route: 041
     Dates: start: 20190618, end: 20190618
  11. TREAKISYM [Suspect]
     Active Substance: BENDAMUSTINE HYDROCHLORIDE
     Dosage: DOSAGE IS UNCERTAIN.
     Route: 041
     Dates: start: 20190618, end: 20190619
  12. OBINUTUZUMAB. [Suspect]
     Active Substance: OBINUTUZUMAB
     Route: 041
     Dates: start: 20191119, end: 20191119
  13. VALIXA [Suspect]
     Active Substance: VALGANCICLOVIR
     Dosage: DOSAGE IS UNCERTAIN.
     Route: 048
     Dates: start: 20200121
  14. OBINUTUZUMAB. [Suspect]
     Active Substance: OBINUTUZUMAB
     Route: 041
     Dates: start: 20190603, end: 20190603

REACTIONS (8)
  - Neutrophil count decreased [Recovered/Resolved]
  - Neutrophil count decreased [Unknown]
  - Escherichia sepsis [Recovered/Resolved]
  - Disease progression [Fatal]
  - Cytomegalovirus test positive [Not Recovered/Not Resolved]
  - Pneumonia [Recovered/Resolved]
  - Septic shock [Recovered/Resolved]
  - Pneumonia bacterial [Unknown]

NARRATIVE: CASE EVENT DATE: 20190722
